FAERS Safety Report 10499718 (Version 2)
Quarter: 2014Q4

REPORT INFORMATION
  Report Type: Spontaneous
  Country: US (occurrence: US)
  Receive Date: 20141006
  Receipt Date: 20141006
  Transmission Date: 20150528
  Serious: No
  Sender: FDA-Public Use
  Company Number: US-AMGEN INC.-USASP2014057160

PATIENT
  Age: 72 Year
  Sex: Female

DRUGS (1)
  1. PROLIA [Suspect]
     Active Substance: DENOSUMAB
     Indication: PRODUCT USED FOR UNKNOWN INDICATION
     Dosage: UNK UNK, Q6MO
     Route: 065
     Dates: start: 20140606

REACTIONS (16)
  - Pain [Unknown]
  - Back pain [Unknown]
  - Arthralgia [Unknown]
  - Varicose vein [Unknown]
  - Pain in extremity [Unknown]
  - Arthropod sting [Unknown]
  - Fatigue [Unknown]
  - Malaise [Unknown]
  - Influenza like illness [Unknown]
  - Viral infection [Unknown]
  - Pruritus [Unknown]
  - Vertigo [Unknown]
  - Chest pain [Unknown]
  - Onychalgia [Unknown]
  - Blepharospasm [Unknown]
  - Vision blurred [Unknown]

NARRATIVE: CASE EVENT DATE: 2014
